FAERS Safety Report 17857278 (Version 1)
Quarter: 2020Q2

REPORT INFORMATION
  Report Type: Spontaneous
  Country: US (occurrence: US)
  Receive Date: 20200603
  Receipt Date: 20200603
  Transmission Date: 20200714
  Serious: No
  Sender: FDA-Public Use
  Company Number: US-TEIKOKU PHARMA USA-TPU2020-00239

PATIENT
  Sex: Male
  Weight: 77.18 kg

DRUGS (5)
  1. OXYCODONE [Concomitant]
     Active Substance: OXYCODONE
     Indication: PAIN
     Dosage: 10/325
  2. LEVOTHYROXINE. [Concomitant]
     Active Substance: LEVOTHYROXINE
  3. LIDODERM [Suspect]
     Active Substance: LIDOCAINE
     Indication: BACK PAIN
  4. QUINAPRIL. [Concomitant]
     Active Substance: QUINAPRIL
  5. ATORVASTATIN [Concomitant]
     Active Substance: ATORVASTATIN

REACTIONS (1)
  - Therapeutic product effect incomplete [Not Recovered/Not Resolved]
